FAERS Safety Report 25299521 (Version 7)
Quarter: 2025Q3

REPORT INFORMATION
  Report Type: Report from Study
  Country: CA (occurrence: CA)
  Receive Date: 20250512
  Receipt Date: 20250716
  Transmission Date: 20251020
  Serious: Yes (Other)
  Sender: TAKEDA
  Company Number: CA-TAKEDA-2025TUS043642

PATIENT
  Sex: Male

DRUGS (3)
  1. VEDOLIZUMAB [Suspect]
     Active Substance: VEDOLIZUMAB
     Indication: Colitis ulcerative
  2. VEDOLIZUMAB [Suspect]
     Active Substance: VEDOLIZUMAB
     Indication: Colitis ulcerative
     Dosage: 108 MILLIGRAM, Q2WEEKS
     Dates: start: 20250513
  3. Salofalk [Concomitant]
     Dosage: UNK UNK, QD
     Dates: start: 20240801

REACTIONS (5)
  - Haematochezia [Unknown]
  - Rectal haemorrhage [Recovering/Resolving]
  - Anaemia [Unknown]
  - Drug ineffective [Unknown]
  - Malaise [Unknown]
